FAERS Safety Report 19015324 (Version 1)
Quarter: 2021Q1

REPORT INFORMATION
  Report Type: Spontaneous
  Country: DE (occurrence: DE)
  Receive Date: 20210317
  Receipt Date: 20210317
  Transmission Date: 20210420
  Serious: Yes (Life-Threatening, Hospitalization, Other)
  Sender: FDA-Public Use
  Company Number: DE-MACLEODS PHARMACEUTICALS US LTD-MAC2021030453

PATIENT

DRUGS (1)
  1. AMLODIPINE [Suspect]
     Active Substance: AMLODIPINE BESYLATE
     Indication: PRODUCT USED FOR UNKNOWN INDICATION
     Dosage: UNK
     Route: 048

REACTIONS (6)
  - Toxicity to various agents [Recovered/Resolved]
  - Cardiac arrest [Recovered/Resolved]
  - Suicide attempt [Unknown]
  - Acute respiratory failure [Recovered/Resolved]
  - Vasoplegia syndrome [Recovered/Resolved]
  - Intentional overdose [Recovered/Resolved]
